FAERS Safety Report 9825711 (Version 1)
Quarter: 2014Q1

REPORT INFORMATION
  Report Type: Report from Study
  Country: US (occurrence: US)
  Receive Date: 20140117
  Receipt Date: 20140117
  Transmission Date: 20141002
  Serious: Yes (Other)
  Sender: FDA-Public Use
  Company Number: US-PURDUE-USA-2014-0110280

PATIENT
  Sex: Female

DRUGS (3)
  1. OXY CR TAB [Suspect]
     Indication: SPINAL DISORDER
     Dosage: 160 MG, BID
     Route: 048
  2. LEVOTHYROXINE [Concomitant]
     Indication: HYPOTHYROIDISM
  3. VITAMIN D                          /00107901/ [Concomitant]
     Indication: VITAMIN D DEFICIENCY

REACTIONS (2)
  - Hypothyroidism [Unknown]
  - Vitamin D deficiency [Unknown]
